FAERS Safety Report 6432112-5 (Version None)
Quarter: 2009Q4

REPORT INFORMATION
  Report Type: 
  Country: None (occurrence: None)
  Receive Date: 20091109
  Receipt Date: 20091102
  Transmission Date: 20100525
  Serious: Yes (Death, Hospitalization, Other)
  Sender: FDA-Public Use
  Company Number: PHEH2009US14737

PATIENT
  Sex: Male
  Weight: 82 kg

DRUGS (4)
  1. EXJADE [Suspect]
     Dosage: 1500 MG, QD
     Route: 048
  2. COREG [Concomitant]
     Dosage: 12.5 MG, UNK
     Route: 048
  3. NEXIUM [Concomitant]
     Dosage: 40 MG, QD
     Route: 048
  4. FLOMAX [Concomitant]
     Route: 048

REACTIONS (4)
  - ACUTE LEUKAEMIA [None]
  - CONCOMITANT DISEASE PROGRESSION [None]
  - DEATH [None]
  - GENERAL PHYSICAL HEALTH DETERIORATION [None]
